FAERS Safety Report 8011060-3 (Version None)
Quarter: 2011Q4

REPORT INFORMATION
  Report Type: 
  Country: None (occurrence: None)
  Receive Date: 20111222
  Receipt Date: 20111209
  Transmission Date: 20120403
  Serious: Yes (Hospitalization)
  Sender: FDA-Public Use
  Company Number: TPA2011A08412

PATIENT
  Age: 80 Year
  Sex: Male

DRUGS (12)
  1. ADENURIC  (FEBUXOSTAT) [Suspect]
     Indication: HYPERURICAEMIA
     Dosage: ORAL
     Route: 048
     Dates: start: 20100101, end: 20111101
  2. LEXOMIL (BROMAZEPAM) [Concomitant]
  3. CEFUROXIME [Concomitant]
  4. EPINITRIL (GLYCERYL TRINITRATE) [Concomitant]
  5. SERETIDE (FLUTICASONE PROPIONATE, SALMETEROL XINAFOATE) [Concomitant]
  6. OMEPRAZOLE [Concomitant]
  7. EQUANIL [Concomitant]
  8. KREDEX (CARVEDILOL) [Concomitant]
  9. POTASSIUM CHLORIDE [Concomitant]
  10. UROREC (SILODOSIN) [Concomitant]
  11. PLAVIX [Concomitant]
  12. FUROSEMIDE [Concomitant]

REACTIONS (1)
  - HAEMOLYTIC ANAEMIA [None]
